FAERS Safety Report 23152732 (Version 2)
Quarter: 2023Q4

REPORT INFORMATION
  Report Type: Spontaneous
  Country: DE (occurrence: DE)
  Receive Date: 20231107
  Receipt Date: 20231108
  Transmission Date: 20240109
  Serious: Yes (Other)
  Sender: FDA-Public Use
  Company Number: DE-UCBSA-2023052502

PATIENT
  Sex: Male

DRUGS (9)
  1. BRIVARACETAM [Suspect]
     Active Substance: BRIVARACETAM
     Indication: Product used for unknown indication
     Dosage: UP TO 400 MILLIGRAM/DAY
     Dates: start: 202001
  2. LEVETIRACETAM [Suspect]
     Active Substance: LEVETIRACETAM
     Indication: Product used for unknown indication
     Dosage: UP TO 3000 MILLIGRAM/DAY
  3. LACOSAMIDE [Suspect]
     Active Substance: LACOSAMIDE
     Indication: Product used for unknown indication
     Dosage: 400 MILLIGRAM/DAY
     Dates: start: 202001
  4. LACOSAMIDE [Suspect]
     Active Substance: LACOSAMIDE
     Dosage: UPTO 500 MILLIGRAM/ DAY
  5. PERAMPANEL [Suspect]
     Active Substance: PERAMPANEL
     Indication: Product used for unknown indication
     Dosage: UP TO 8 MILLIGRAM/DAY
     Dates: start: 202001
  6. VALPROATE [Suspect]
     Active Substance: VALPROIC ACID
     Indication: Product used for unknown indication
     Dosage: 2000 MILLIGRAM/DAY
     Dates: start: 202010
  7. CENOBAMATE [Suspect]
     Active Substance: CENOBAMATE
     Indication: Product used for unknown indication
     Dosage: UPTO 200 MILLIGRAM
     Dates: start: 202103
  8. OXCARBAZEPINE [Suspect]
     Active Substance: OXCARBAZEPINE
     Indication: Product used for unknown indication
     Dosage: UP TO 1800 MILLIGRAM/DAY
  9. LAMOTRIGINE [Suspect]
     Active Substance: LAMOTRIGINE
     Indication: Product used for unknown indication
     Dosage: UPTO 400 MILLIGRAM/DAY

REACTIONS (5)
  - Seizure [Unknown]
  - Fatigue [Recovering/Resolving]
  - Disturbance in attention [Unknown]
  - Multiple-drug resistance [Unknown]
  - Prescribed overdose [Unknown]

NARRATIVE: CASE EVENT DATE: 20201001
